FAERS Safety Report 23592927 (Version 1)
Quarter: 2024Q1

REPORT INFORMATION
  Report Type: Spontaneous
  Country: CA (occurrence: CA)
  Receive Date: 20240304
  Receipt Date: 20240304
  Transmission Date: 20240409
  Serious: Yes (Other)
  Sender: FDA-Public Use
  Company Number: CA-PFIZER INC-202400054192

PATIENT
  Age: 79 Year
  Sex: Female

DRUGS (1)
  1. BUPIVACAINE HYDROCHLORIDE [Suspect]
     Active Substance: BUPIVACAINE HYDROCHLORIDE\BUPIVACAINE HYDROCHLORIDE ANHYDROUS
     Indication: Spinal anaesthesia
     Dosage: 9 MG, SINGLE
     Route: 037

REACTIONS (3)
  - Block vertebra [Recovered/Resolved]
  - Motor dysfunction [Recovered/Resolved]
  - Sensory disturbance [Recovered/Resolved]
